FAERS Safety Report 9356828 (Version 3)
Quarter: 2014Q3

REPORT INFORMATION
  Report Type: Spontaneous
  Country: US (occurrence: US)
  Receive Date: 20130620
  Receipt Date: 20140819
  Transmission Date: 20150326
  Serious: Yes (Hospitalization, Other)
  Sender: FDA-Public Use
  Company Number: US-009507513-1306USA008985

PATIENT
  Sex: Female
  Weight: 68.27 kg

DRUGS (1)
  1. NUVARING [Suspect]
     Active Substance: ETHINYL ESTRADIOL\ETONOGESTREL
     Indication: CONTRACEPTION
     Dosage: UNK
     Route: 067
     Dates: start: 20090925, end: 20110616

REACTIONS (7)
  - Cerebrovascular accident [Unknown]
  - Anxiety [Unknown]
  - Fatigue [Unknown]
  - Vasculitis [Unknown]
  - Eye operation [Unknown]
  - Thyroid disorder [Unknown]
  - Migraine [Unknown]

NARRATIVE: CASE EVENT DATE: 2009
